FAERS Safety Report 12705080 (Version 2)
Quarter: 2016Q3

REPORT INFORMATION
  Report Type: Spontaneous
  Country: CA (occurrence: CA)
  Receive Date: 20160831
  Receipt Date: 20160906
  Transmission Date: 20161109
  Serious: Yes (Disabling, Other)
  Sender: FDA-Public Use
  Company Number: CA-ASTRAZENECA-2016SE92399

PATIENT
  Age: 58 Year
  Sex: Male

DRUGS (11)
  1. QUETIAPINE. [Concomitant]
     Active Substance: QUETIAPINE
  2. BUPROPION. [Concomitant]
     Active Substance: BUPROPION
  3. SYNTHROID [Concomitant]
     Active Substance: LEVOTHYROXINE SODIUM
  4. TOPIRAMATE. [Concomitant]
     Active Substance: TOPIRAMATE
  5. CAMBIA [Concomitant]
     Active Substance: DICLOFENAC POTASSIUM
  6. TYLENOL WITH CODEINE [Concomitant]
     Active Substance: ACETAMINOPHEN\CODEINE PHOSPHATE
  7. DULOXETINE. [Concomitant]
     Active Substance: DULOXETINE
  8. ZOMIG [Suspect]
     Active Substance: ZOLMITRIPTAN
     Indication: MIGRAINE
     Dosage: 12-18 TABLETS PER MONTH
     Route: 048
     Dates: start: 201206
  9. CLONAZEPAM. [Concomitant]
     Active Substance: CLONAZEPAM
  10. NICEDAPINE [Concomitant]
  11. PANTOLOC [Concomitant]
     Active Substance: PANTOPRAZOLE SODIUM

REACTIONS (2)
  - Blindness [Not Recovered/Not Resolved]
  - Macular degeneration [Not Recovered/Not Resolved]
